FAERS Safety Report 12117774 (Version 1)
Quarter: 2016Q1

REPORT INFORMATION
  Report Type: Spontaneous
  Country: US (occurrence: US)
  Receive Date: 20160226
  Receipt Date: 20160226
  Transmission Date: 20160526
  Serious: Yes (Hospitalization)
  Sender: FDA-Public Use
  Company Number: US-BEH-2016059038

PATIENT
  Age: 59 Year
  Sex: Male

DRUGS (1)
  1. ZEMAIRA [Suspect]
     Active Substance: .ALPHA.1-PROTEINASE INHIBITOR HUMAN
     Indication: PRODUCT USED FOR UNKNOWN INDICATION
     Dosage: HAS BEEN ON ZEMAIRA WEEKLY FOR APPROXIMATLEY 3 YEARS

REACTIONS (5)
  - Testicular pain [Unknown]
  - Flank pain [Unknown]
  - Back pain [Unknown]
  - Abdominal pain [Unknown]
  - Musculoskeletal pain [Unknown]
